FAERS Safety Report 18071993 (Version 1)
Quarter: 2020Q3

REPORT INFORMATION
  Report Type: Spontaneous
  Country: US (occurrence: US)
  Receive Date: 20200724
  Receipt Date: 20200724
  Transmission Date: 20201103
  Serious: Yes (Hospitalization)
  Sender: FDA-Public Use
  Company Number: None

PATIENT
  Sex: Male

DRUGS (13)
  1. ENOXAPARIN [Concomitant]
     Active Substance: ENOXAPARIN
  2. GABAPENTIN. [Concomitant]
     Active Substance: GABAPENTIN
  3. NARCAN [Concomitant]
     Active Substance: NALOXONE HYDROCHLORIDE
  4. POLYATH GLYC [Concomitant]
  5. VENLAFAXINE [Concomitant]
     Active Substance: VENLAFAXINE HYDROCHLORIDE
  6. FOLIC ACID. [Concomitant]
     Active Substance: FOLIC ACID
  7. SUMATRIPTAN. [Concomitant]
     Active Substance: SUMATRIPTAN
  8. HUMIRA [Suspect]
     Active Substance: ADALIMUMAB
     Indication: PSORIATIC ARTHROPATHY
     Route: 058
     Dates: start: 20180118
  9. AMOX/K CLAV [Concomitant]
     Active Substance: AMOXICILLIN\CLAVULANATE POTASSIUM
  10. BUSPIRONE [Concomitant]
     Active Substance: BUSPIRONE HYDROCHLORIDE
  11. ELIQUIS [Concomitant]
     Active Substance: APIXABAN
  12. OXYCODONE [Concomitant]
     Active Substance: OXYCODONE
  13. DIAZEPAM. [Concomitant]
     Active Substance: DIAZEPAM

REACTIONS (1)
  - Fatigue [None]
